FAERS Safety Report 9374902 (Version 1)
Quarter: 2013Q2

REPORT INFORMATION
  Report Type: Report from Study
  Country: GB (occurrence: GB)
  Receive Date: 20130628
  Receipt Date: 20130628
  Transmission Date: 20140414
  Serious: Yes (Hospitalization, Other)
  Sender: FDA-Public Use
  Company Number: GB-UCBSA-088805

PATIENT
  Age: 61 Year
  Sex: Female
  Weight: 114 kg

DRUGS (15)
  1. CIMZIA [Suspect]
     Indication: RHEUMATOID ARTHRITIS
     Route: 058
     Dates: start: 20121029, end: 2012
  2. CIMZIA [Suspect]
     Indication: RHEUMATOID ARTHRITIS
     Route: 058
     Dates: start: 20120917, end: 2012
  3. ATENOLOL [Concomitant]
     Indication: HYPERTENSION
     Dates: start: 2000
  4. DOXAZOSIN [Concomitant]
     Indication: HYPERTENSION
     Dates: start: 2002
  5. URSODEOXYCHOLIC ACID [Concomitant]
     Indication: BILIARY CIRRHOSIS PRIMARY
     Dates: start: 20080115
  6. BENDROFLUMETHIAZIDE [Concomitant]
     Indication: POLYURIA
     Dates: start: 2000
  7. PARACETAMOL [Concomitant]
     Indication: ANALGESIC THERAPY
     Dates: start: 1969
  8. SALAZOPYRIN [Concomitant]
     Dates: end: 20121103
  9. IBUPROFEN [Concomitant]
     Dates: start: 2010
  10. SULPHASALAZINE [Concomitant]
     Route: 048
     Dates: start: 20101006, end: 201010
  11. SULPHASALAZINE [Concomitant]
     Route: 048
     Dates: start: 20101013, end: 201010
  12. SULPHASALAZINE [Concomitant]
     Route: 048
     Dates: start: 20101020, end: 201010
  13. SULPHASALAZINE [Concomitant]
     Route: 048
     Dates: start: 20101027
  14. SULPHASALAZINE [Concomitant]
     Dosage: DAILY DOSE: 1500 MG
     Route: 048
     Dates: start: 20110304
  15. LEFLUNOMIDE [Concomitant]
     Indication: PAIN
     Route: 048
     Dates: start: 20120522

REACTIONS (1)
  - Pneumonia [Recovered/Resolved]
